FAERS Safety Report 5134276-2 (Version None)
Quarter: 2006Q4

REPORT INFORMATION
  Report Type: 
  Country: None (occurrence: None)
  Receive Date: 20061019
  Receipt Date: 20061006
  Transmission Date: 20070319
  Serious: Yes (Death, Hospitalization)
  Sender: FDA-Public Use
  Company Number: 2005-11-1372

PATIENT
  Age: 76 Year
  Sex: Female

DRUGS (8)
  1. TEMODAL [Suspect]
     Indication: METASTASES TO CENTRAL NERVOUS SYSTEM
     Dosage: 120 MG; QD; PO
     Route: 048
     Dates: start: 20051107, end: 20051116
  2. RADIATION THERAPY (CON.) [Concomitant]
  3. PANTOPRAZOL (CON.) [Concomitant]
  4. DEXAMETHASONE (CON.) [Concomitant]
  5. FLUCONAZOLE (CON.) [Concomitant]
  6. BACTRIM FORTE (CON.) [Concomitant]
  7. CEFTRIAXONE (CON.) [Concomitant]
  8. METRONIDAZOLE (CON.) [Concomitant]

REACTIONS (4)
  - DIVERTICULITIS [None]
  - INTESTINAL PERFORATION [None]
  - NEOPLASM PROGRESSION [None]
  - THROMBOCYTOPENIA [None]
